FAERS Safety Report 8282334-6 (Version None)
Quarter: 2012Q2

REPORT INFORMATION
  Report Type: 
  Country: None (occurrence: None)
  Receive Date: 20120413
  Receipt Date: 20120409
  Transmission Date: 20120825
  Serious: Yes (Other)
  Sender: FDA-Public Use
  Company Number: US-JNJFOC-20120404412

PATIENT
  Sex: Male

DRUGS (1)
  1. BENADRYL [Suspect]
     Indication: SLEEP DISORDER THERAPY
     Dosage: FOR ABOUT A YEAR
     Route: 048

REACTIONS (2)
  - OFF LABEL USE [None]
  - DEPRESSION [None]
